FAERS Safety Report 9613061 (Version 3)
Quarter: 2013Q4

REPORT INFORMATION
  Report Type: Spontaneous
  Country: CA (occurrence: CA)
  Receive Date: 20131010
  Receipt Date: 20131031
  Transmission Date: 20140711
  Serious: Yes (Hospitalization)
  Sender: FDA-Public Use
  Company Number: CA-GLAXOSMITHKLINE-A1044194A

PATIENT
  Sex: Male
  Weight: 84 kg

DRUGS (5)
  1. BENLYSTA [Suspect]
     Indication: SYSTEMIC LUPUS ERYTHEMATOSUS
     Dosage: 840MG SEE DOSAGE TEXT
     Route: 042
     Dates: start: 20130313
  2. PREDNISONE [Concomitant]
  3. PLAQUENIL [Concomitant]
     Dosage: 200MG PER DAY
     Route: 048
  4. BENADRYL [Concomitant]
     Route: 048
  5. TYLENOL [Concomitant]

REACTIONS (6)
  - Shoulder operation [Unknown]
  - Arthritis [Unknown]
  - Tendon rupture [Unknown]
  - Exostosis [Unknown]
  - Rotator cuff repair [Unknown]
  - Ostectomy [Unknown]
